FAERS Safety Report 11009512 (Version 1)
Quarter: 2015Q2

REPORT INFORMATION
  Report Type: Spontaneous
  Country: FR (occurrence: FR)
  Receive Date: 20150410
  Receipt Date: 20150410
  Transmission Date: 20150821
  Serious: Yes (Hospitalization)
  Sender: FDA-Public Use
  Company Number: FR-SA-2015SA043422

PATIENT
  Age: 91 Year
  Sex: Female

DRUGS (19)
  1. LASILIX [Suspect]
     Active Substance: FUROSEMIDE
     Dosage: 30 MG 3 / D.
     Route: 042
     Dates: start: 20141227, end: 20141228
  2. NORSET [Concomitant]
     Active Substance: MIRTAZAPINE
     Dosage: 15 MG
  3. LASILIX [Suspect]
     Active Substance: FUROSEMIDE
     Route: 048
     Dates: start: 20141218, end: 20141223
  4. LASILIX [Suspect]
     Active Substance: FUROSEMIDE
     Route: 042
     Dates: start: 20141224
  5. OMNIPAQUE [Suspect]
     Active Substance: IOHEXOL
     Route: 042
     Dates: start: 20141224, end: 20141224
  6. MINISINTROM [Concomitant]
     Active Substance: ACENOCOUMAROL
  7. ALDACTONE [Concomitant]
     Active Substance: SPIRONOLACTONE
  8. AERIUS [Concomitant]
     Active Substance: DESLORATADINE
  9. GENTAMICIN. [Suspect]
     Active Substance: GENTAMICIN
     Dosage: 3MG/KG
     Route: 042
     Dates: start: 20141222, end: 20141222
  10. LASILIX [Suspect]
     Active Substance: FUROSEMIDE
     Dosage: 60 MG  3/ DAY
     Route: 042
     Dates: start: 20141224
  11. CLAMOXYL [Suspect]
     Active Substance: AMOXICILLIN\CLAVULANIC ACID
     Route: 065
     Dates: start: 20141229
  12. LEVOTHYROX [Concomitant]
     Active Substance: LEVOTHYROXINE
  13. KAYEXALATE [Concomitant]
     Active Substance: SODIUM POLYSTYRENE SULFONATE
     Dates: start: 20141228
  14. GENTAMICIN. [Suspect]
     Active Substance: GENTAMICIN
     Route: 042
     Dates: start: 20141225, end: 20141225
  15. CLAMOXYL [Suspect]
     Active Substance: AMOXICILLIN\CLAVULANIC ACID
     Dosage: FREQUENCY: 6/DAY
     Route: 042
     Dates: start: 20141222
  16. CLAMOXYL [Suspect]
     Active Substance: AMOXICILLIN\CLAVULANIC ACID
     Route: 048
     Dates: end: 20150318
  17. CLAMOXYL [Suspect]
     Active Substance: AMOXICILLIN\CLAVULANIC ACID
     Route: 042
     Dates: start: 20150102
  18. LASILIX [Suspect]
     Active Substance: FUROSEMIDE
     Dosage: FREQUENCY-2/DAY
     Route: 048
     Dates: start: 20150106
  19. SERETIDE [Concomitant]
     Active Substance: FLUTICASONE FUROATE\SALMETEROL XINAFOATE
     Dosage: 250

REACTIONS (1)
  - Acute kidney injury [Recovered/Resolved]

NARRATIVE: CASE EVENT DATE: 20141227
